FAERS Safety Report 8385896-3 (Version None)
Quarter: 2012Q2

REPORT INFORMATION
  Report Type: 
  Country: None (occurrence: None)
  Receive Date: 20120525
  Receipt Date: 20120517
  Transmission Date: 20120825
  Serious: Yes (Other)
  Sender: FDA-Public Use
  Company Number: JP-JNJFOC-20120403607

PATIENT
  Age: 69 Year
  Sex: Female
  Weight: 40 kg

DRUGS (4)
  1. OLOPATADINE HCL [Concomitant]
     Route: 065
  2. GALANTAMINE HYDROBROMIDE [Suspect]
     Indication: PRODUCT USED FOR UNKNOWN INDICATION
     Route: 048
     Dates: start: 20120314, end: 20120403
  3. ASPIRIN DIALUMINATE [Concomitant]
     Route: 065
  4. NORVASC [Concomitant]
     Route: 048

REACTIONS (1)
  - TOXIC SKIN ERUPTION [None]
